FAERS Safety Report 9218156 (Version 3)
Quarter: 2015Q1

REPORT INFORMATION
  Report Type: Spontaneous
  Country: US (occurrence: US)
  Receive Date: 20130408
  Receipt Date: 20150304
  Transmission Date: 20150721
  Serious: No
  Sender: FDA-Public Use
  Company Number: US-009507513-1304USA002513

PATIENT
  Sex: Male

DRUGS (1)
  1. PROPECIA [Suspect]
     Active Substance: FINASTERIDE
     Indication: ANDROGENETIC ALOPECIA
     Dosage: 1 MG
     Route: 048
     Dates: start: 20050523, end: 20050727

REACTIONS (8)
  - Erectile dysfunction [Unknown]
  - Sexual dysfunction [Not Recovered/Not Resolved]
  - Ejaculation disorder [Unknown]
  - Cognitive disorder [Not Recovered/Not Resolved]
  - Foreign body in eye [Unknown]
  - Localised infection [Unknown]
  - Erectile dysfunction [Unknown]
  - Ejaculation failure [Unknown]

NARRATIVE: CASE EVENT DATE: 2005
